FAERS Safety Report 6838785-7 (Version None)
Quarter: 2010Q3

REPORT INFORMATION
  Report Type: 
  Country: None (occurrence: None)
  Receive Date: 20100713
  Receipt Date: 20070802
  Transmission Date: 20110219
  Serious: No
  Sender: FDA-Public Use
  Company Number: US-PFIZER INC-2007048348

PATIENT
  Age: 43 Year
  Sex: Female
  Weight: 63.2 kg

DRUGS (6)
  1. CHANTIX [Suspect]
     Indication: SMOKING CESSATION THERAPY
     Route: 048
     Dates: start: 20070531, end: 20070604
  2. CHANTIX [Suspect]
     Indication: TOBACCO ABUSE
  3. MOTRIN [Concomitant]
  4. LEXAPRO [Concomitant]
  5. NASACORT AQ [Concomitant]
  6. SALBUTAMOL [Concomitant]

REACTIONS (4)
  - DIZZINESS [None]
  - FATIGUE [None]
  - MUSCULAR WEAKNESS [None]
  - MYALGIA [None]
